FAERS Safety Report 6879734-5 (Version None)
Quarter: 2010Q3

REPORT INFORMATION
  Report Type: 
  Country: None (occurrence: None)
  Receive Date: 20100728
  Receipt Date: 20100720
  Transmission Date: 20110219
  Serious: Yes (Other)
  Sender: FDA-Public Use
  Company Number: US-ASTRAZENECA-2006UW07870

PATIENT
  Age: 43 Year
  Sex: Female
  Weight: 64.4 kg

DRUGS (15)
  1. SEROQUEL [Suspect]
     Indication: DEPRESSION
     Dosage: 25 MG TO 100 MG
     Route: 048
     Dates: start: 20040310, end: 20051207
  2. SEROQUEL [Suspect]
     Route: 048
     Dates: start: 20040830, end: 20050222
  3. SINGULAIR [Concomitant]
     Dates: start: 20041213
  4. XANAX [Concomitant]
     Dosage: 0.5 MG - 1 MG
     Route: 048
     Dates: start: 20030924
  5. ZYRTEC [Concomitant]
     Route: 048
     Dates: start: 20030409
  6. PREVACID [Concomitant]
     Dates: start: 20030409
  7. ACIPHEX [Concomitant]
     Route: 048
     Dates: start: 20030409
  8. MIRALAX [Concomitant]
     Dates: start: 20030711
  9. PAXIL [Concomitant]
     Dosage: 12.5 MG TO 37.5 MG
     Route: 048
     Dates: start: 20040310
  10. ZOCOR [Concomitant]
     Dates: start: 20041213
  11. ZETIA [Concomitant]
     Dates: start: 20041213
  12. LASIX [Concomitant]
     Dates: start: 20041213
  13. ALDACTONE [Concomitant]
     Dates: start: 20041213
  14. AMITRIPTYLINE HYDROCHLORIDE [Concomitant]
     Dates: start: 20041213
  15. ASPIRIN [Concomitant]
     Route: 048
     Dates: start: 20051031

REACTIONS (12)
  - BLOOD CHOLESTEROL INCREASED [None]
  - BLOOD TRIGLYCERIDES INCREASED [None]
  - CARDIAC DISORDER [None]
  - DIABETES MELLITUS INADEQUATE CONTROL [None]
  - HYPERGLYCAEMIA [None]
  - HYPERLIPIDAEMIA [None]
  - HYPERPROLACTINAEMIA [None]
  - OBESITY [None]
  - TARDIVE DYSKINESIA [None]
  - THROMBOSIS [None]
  - TYPE 2 DIABETES MELLITUS [None]
  - UTERINE DISORDER [None]
